FAERS Safety Report 6706860-3 (Version None)
Quarter: 2010Q2

REPORT INFORMATION
  Report Type: 
  Country: None (occurrence: None)
  Receive Date: 20100503
  Receipt Date: 20100421
  Transmission Date: 20101027
  Serious: Yes (Hospitalization)
  Sender: FDA-Public Use
  Company Number: CH-ELI_LILLY_AND_COMPANY-CH201004006483

PATIENT
  Age: 48 Year
  Sex: Female

DRUGS (3)
  1. ZYPREXA [Suspect]
     Dosage: 10 MG, DAILY (1/D)
     Route: 048
     Dates: end: 20090203
  2. REMERON [Concomitant]
     Dosage: 30 MG, DAILY (1/D)
     Route: 048
  3. IMOVANE [Concomitant]
     Dosage: 1 D/F, 2/D
     Route: 048

REACTIONS (6)
  - AGITATION [None]
  - AKATHISIA [None]
  - GAIT DISTURBANCE [None]
  - NAUSEA [None]
  - RESTLESS LEGS SYNDROME [None]
  - VESTIBULAR FUNCTION TEST ABNORMAL [None]
